FAERS Safety Report 13632768 (Version 3)
Quarter: 2017Q4

REPORT INFORMATION
  Report Type: Report from Study
  Country: US (occurrence: US)
  Receive Date: 20170609
  Receipt Date: 20171011
  Transmission Date: 20180320
  Serious: Yes (Other)
  Sender: FDA-Public Use
  Company Number: US-BIOGEN-2017BI00413242

PATIENT
  Age: 69 Year
  Sex: Female
  Weight: 76.2 kg

DRUGS (30)
  1. TECFIDERA [Suspect]
     Active Substance: DIMETHYL FUMARATE
     Dosage: MAINTENANCE DOSE
     Route: 048
  2. BETASERON [Concomitant]
     Active Substance: INTERFERON BETA-1B
     Indication: PRODUCT USED FOR UNKNOWN INDICATION
     Route: 065
  3. INSULIN REGULAR [Concomitant]
     Active Substance: INSULIN NOS
     Indication: PRODUCT USED FOR UNKNOWN INDICATION
     Route: 065
  4. NAMENDA [Concomitant]
     Active Substance: MEMANTINE HYDROCHLORIDE
     Indication: MEMORY IMPAIRMENT
     Route: 048
  5. ULTRAM [Concomitant]
     Active Substance: TRAMADOL HYDROCHLORIDE
     Indication: PAIN
     Route: 048
  6. DESYREL [Concomitant]
     Active Substance: TRAZODONE HYDROCHLORIDE
     Indication: SLEEP DISORDER
     Route: 048
  7. LIPITOR [Concomitant]
     Active Substance: ATORVASTATIN CALCIUM
     Indication: HEPATIC STEATOSIS
     Route: 048
  8. PLAVIX [Concomitant]
     Active Substance: CLOPIDOGREL BISULFATE
     Indication: CEREBROVASCULAR ACCIDENT PROPHYLAXIS
     Route: 048
  9. CYMBALTA [Concomitant]
     Active Substance: DULOXETINE HYDROCHLORIDE
     Indication: MOOD SWINGS
     Route: 048
  10. FLONASE [Concomitant]
     Active Substance: FLUTICASONE PROPIONATE
     Indication: PRODUCT USED FOR UNKNOWN INDICATION
     Dosage: 2 SPRAYS EACH NARE 48G DAILY
     Route: 065
  11. LEVOTHYROXINE. [Concomitant]
     Active Substance: LEVOTHYROXINE
     Indication: PRODUCT USED FOR UNKNOWN INDICATION
     Route: 048
  12. TRILEPTAL [Concomitant]
     Active Substance: OXCARBAZEPINE
     Indication: PRODUCT USED FOR UNKNOWN INDICATION
     Route: 048
  13. TECFIDERA [Suspect]
     Active Substance: DIMETHYL FUMARATE
     Indication: MULTIPLE SCLEROSIS
     Dosage: STARTING DOSE
     Route: 048
     Dates: start: 201503
  14. ZANTAC [Concomitant]
     Active Substance: RANITIDINE HYDROCHLORIDE
     Indication: GASTROOESOPHAGEAL REFLUX DISEASE
     Route: 048
  15. ZANTAC [Concomitant]
     Active Substance: RANITIDINE HYDROCHLORIDE
     Indication: HYPERCHLORHYDRIA
  16. TECFIDERA [Suspect]
     Active Substance: DIMETHYL FUMARATE
     Dosage: STARTING DOSE
     Route: 048
     Dates: start: 20151207
  17. TECFIDERA [Suspect]
     Active Substance: DIMETHYL FUMARATE
     Dosage: MAINTENANCE DOSE
     Route: 048
  18. WELLBUTRIN SR [Concomitant]
     Active Substance: BUPROPION HYDROCHLORIDE
     Indication: MOOD SWINGS
     Route: 048
  19. NPH INSULIN [Concomitant]
     Active Substance: INSULIN BEEF
     Indication: PRODUCT USED FOR UNKNOWN INDICATION
     Route: 065
  20. SINGULAIR [Concomitant]
     Active Substance: MONTELUKAST SODIUM
     Indication: ALLERGY PROPHYLAXIS
     Route: 048
  21. PHENERGAN W/ CODEINE [Concomitant]
     Active Substance: CODEINE PHOSPHATE\PROMETHAZINE HYDROCHLORIDE
     Indication: SOMNOLENCE
     Dosage: 6.25-10MG/5ML, TAKE 5ML BY MOUTH EVERY 4 HRS FOR COUGH
     Route: 048
  22. ARICEPT [Concomitant]
     Active Substance: DONEPEZIL HYDROCHLORIDE
     Indication: PRODUCT USED FOR UNKNOWN INDICATION
     Route: 048
  23. FLOVENT HFA [Concomitant]
     Active Substance: FLUTICASONE PROPIONATE
     Indication: PRODUCT USED FOR UNKNOWN INDICATION
     Route: 065
  24. CYMBALTA [Concomitant]
     Active Substance: DULOXETINE HYDROCHLORIDE
     Indication: PAIN PROPHYLAXIS
  25. NEURONTIN [Concomitant]
     Active Substance: GABAPENTIN
     Indication: PAIN PROPHYLAXIS
     Route: 048
  26. ZESTRIL [Concomitant]
     Active Substance: LISINOPRIL
     Indication: PRODUCT USED FOR UNKNOWN INDICATION
     Route: 048
  27. ZYRTEC [Concomitant]
     Active Substance: CETIRIZINE HYDROCHLORIDE
     Indication: PRODUCT USED FOR UNKNOWN INDICATION
     Route: 048
  28. VITAMIN D3 [Concomitant]
     Active Substance: CHOLECALCIFEROL
     Indication: PRODUCT USED FOR UNKNOWN INDICATION
     Route: 048
  29. PRINIVIL [Concomitant]
     Active Substance: LISINOPRIL
     Indication: PRODUCT USED FOR UNKNOWN INDICATION
     Route: 048
  30. METFORMIN [Concomitant]
     Active Substance: METFORMIN HYDROCHLORIDE
     Indication: DIABETES MELLITUS
     Route: 048

REACTIONS (7)
  - Vitamin D deficiency [Unknown]
  - Fall [Recovered/Resolved]
  - Pain [Unknown]
  - Ventricular extrasystoles [Unknown]
  - Visual impairment [Not Recovered/Not Resolved]
  - Vitreous detachment [Unknown]
  - Dizziness [Unknown]

NARRATIVE: CASE EVENT DATE: 20161117
